FAERS Safety Report 4479474-6 (Version None)
Quarter: 2004Q4

REPORT INFORMATION
  Report Type: 
  Country: None (occurrence: None)
  Receive Date: 20041015
  Receipt Date: 20041006
  Transmission Date: 20050328
  Serious: Yes (Hospitalization)
  Sender: FDA-Public Use
  Company Number: 2004229734FR

PATIENT
  Age: 69 Year
  Sex: Female

DRUGS (3)
  1. CLINDAMYCIN HCL [Suspect]
     Indication: ABSCESS LIMB
     Dosage: 300 MG, ORAL
     Route: 048
     Dates: start: 20040625, end: 20040706
  2. CIPROFLOXACIN [Suspect]
     Indication: ABSCESS LIMB
     Dosage: 1 G DAILY, ORAL
     Route: 048
     Dates: start: 20040625, end: 20040706
  3. AXEPIM (CEFEPIME HYDROCHLORIDE) [Suspect]
     Indication: ABSCESS LIMB
     Dosage: 4 G EVERY DAY, IV
     Route: 042
     Dates: start: 20040625, end: 20040706

REACTIONS (4)
  - CONFUSIONAL STATE [None]
  - FLUID INTAKE REDUCED [None]
  - MARKEDLY REDUCED DIETARY INTAKE [None]
  - METABOLIC ACIDOSIS [None]
